FAERS Safety Report 18027804 (Version 1)
Quarter: 2020Q3

REPORT INFORMATION
  Report Type: Report from Study
  Country: CA (occurrence: CA)
  Receive Date: 20200716
  Receipt Date: 20200716
  Transmission Date: 20201103
  Serious: Yes (Other)
  Sender: FDA-Public Use
  Company Number: CA-ACCORD-190496

PATIENT
  Age: 36 Year
  Sex: Male

DRUGS (10)
  1. COSENTYX [Suspect]
     Active Substance: SECUKINUMAB
     Indication: PSORIATIC ARTHROPATHY
  2. ENBREL [Concomitant]
     Active Substance: ETANERCEPT
  3. METHOTREXATE. [Suspect]
     Active Substance: METHOTREXATE
     Indication: PRODUCT USED FOR UNKNOWN INDICATION
  4. COSENTYX [Suspect]
     Active Substance: SECUKINUMAB
     Indication: PSORIATIC ARTHROPATHY
     Dosage: 1 EVERY 1 WEEKS
     Route: 058
  5. NAPROXEN. [Concomitant]
     Active Substance: NAPROXEN
  6. IBUPROFEN. [Concomitant]
     Active Substance: IBUPROFEN
  7. HUMIRA [Concomitant]
     Active Substance: ADALIMUMAB
  8. CELEBREX [Concomitant]
     Active Substance: CELECOXIB
  9. DICLOFENAC [Suspect]
     Active Substance: DICLOFENAC
     Indication: PRODUCT USED FOR UNKNOWN INDICATION
  10. COSENTYX [Suspect]
     Active Substance: SECUKINUMAB
     Indication: PSORIATIC ARTHROPATHY
     Route: 058

REACTIONS (17)
  - Cyst [Unknown]
  - Food intolerance [Unknown]
  - Abscess limb [Unknown]
  - Weight decreased [Unknown]
  - Pneumonia [Unknown]
  - Inappropriate schedule of product administration [Unknown]
  - Nasal discomfort [Unknown]
  - Skin fissures [Unknown]
  - Nasal dryness [Unknown]
  - Stress [Unknown]
  - Arthralgia [Unknown]
  - Psoriasis [Unknown]
  - Weight increased [Unknown]
  - Abdominal distension [Unknown]
  - Pruritus [Unknown]
  - Depression [Unknown]
  - Pain [Unknown]
